FAERS Safety Report 6398769-2 (Version None)
Quarter: 2009Q4

REPORT INFORMATION
  Report Type: 
  Country: None (occurrence: None)
  Receive Date: 20091013
  Receipt Date: 20091002
  Transmission Date: 20100525
  Serious: Yes (Other)
  Sender: FDA-Public Use
  Company Number: CA-JNJFOC-20091001522

PATIENT
  Sex: Male
  Weight: 53 kg

DRUGS (2)
  1. REMICADE [Suspect]
     Route: 042
  2. REMICADE [Suspect]
     Indication: CROHN'S DISEASE
     Route: 042

REACTIONS (5)
  - CHEST DISCOMFORT [None]
  - DYSPHAGIA [None]
  - INFUSION RELATED REACTION [None]
  - OROPHARYNGEAL PAIN [None]
  - SINUS CONGESTION [None]
